FAERS Safety Report 7879477-5 (Version None)
Quarter: 2011Q4

REPORT INFORMATION
  Report Type: 
  Country: None (occurrence: None)
  Receive Date: 20111101
  Receipt Date: 20110516
  Transmission Date: 20120403
  Serious: No
  Sender: FDA-Public Use
  Company Number: US-ABBOTT-11P-163-0726390-00

PATIENT
  Sex: Female

DRUGS (7)
  1. LEVAQUIN [Suspect]
     Indication: PRODUCT USED FOR UNKNOWN INDICATION
  2. CIPROFLOXACIN [Suspect]
     Indication: PRODUCT USED FOR UNKNOWN INDICATION
  3. FLOXIN [Suspect]
     Indication: PRODUCT USED FOR UNKNOWN INDICATION
  4. BIAXIN [Suspect]
     Indication: PRODUCT USED FOR UNKNOWN INDICATION
  5. CLARITHROMYCIN [Suspect]
     Indication: PRODUCT USED FOR UNKNOWN INDICATION
  6. SULFA [Suspect]
     Indication: PRODUCT USED FOR UNKNOWN INDICATION
  7. MINOCYCLINE HCL [Suspect]
     Indication: PRODUCT USED FOR UNKNOWN INDICATION

REACTIONS (1)
  - DRUG INEFFECTIVE [None]
